FAERS Safety Report 11540253 (Version 1)
Quarter: 2015Q3

REPORT INFORMATION
  Report Type: Report from Study
  Country: CN (occurrence: CN)
  Receive Date: 20150923
  Receipt Date: 20150923
  Transmission Date: 20151125
  Serious: Yes (Death, Other)
  Sender: FDA-Public Use
  Company Number: CN-SA-2015SA145278

PATIENT

DRUGS (5)
  1. CISPLATIN. [Suspect]
     Active Substance: CISPLATIN
     Indication: NASOPHARYNGEAL CANCER
     Dosage: ADMINISTERED ON DAY 1 DURING EACH CYCLE OF INDUCTION CHEMOTHERAPY.
     Route: 042
  2. CISPLATIN. [Suspect]
     Active Substance: CISPLATIN
     Indication: NASOPHARYNGEAL CANCER
     Dosage: ADMINISTERED AS PART OF CONCURRENT CHEMORADIOTHERAPY.
     Route: 065
  3. DOCETAXEL. [Suspect]
     Active Substance: DOCETAXEL
     Indication: NASOPHARYNGEAL CANCER
     Dosage: ADMINISTERED ON DAY 1 DURING INDUCTION THERAPY.
     Route: 042
  4. RECOMBINANT HUMAN ENDOSTATIN [Suspect]
     Active Substance: ENDOSTATIN
     Indication: NASOPHARYNGEAL CANCER
     Route: 042
  5. RECOMBINANT HUMAN ENDOSTATIN [Suspect]
     Active Substance: ENDOSTATIN
     Indication: NASOPHARYNGEAL CANCER
     Dosage: ADMINISTERED ON DAYS 1-14 (CONCURRENT THERAPY).
     Route: 042

REACTIONS (4)
  - Infection [Unknown]
  - Vascular injury [Fatal]
  - Epistaxis [Fatal]
  - Pharyngeal haemorrhage [Fatal]
